FAERS Safety Report 5019552-6 (Version None)
Quarter: 2006Q2

REPORT INFORMATION
  Report Type: 
  Country: None (occurrence: None)
  Receive Date: 20060531
  Receipt Date: 20060522
  Transmission Date: 20061013
  Serious: Yes (Life-Threatening)
  Sender: FDA-Public Use
  Company Number: 200612124GDS

PATIENT
  Age: 78 Year
  Sex: Female
  Weight: 50 kg

DRUGS (4)
  1. ASPIRIN [Suspect]
     Dosage: 100 MG, TOTAL DAILY, ORAL
     Route: 048
     Dates: end: 20051219
  2. COVERSYL (PERINDOPRIL ERBUMINE) [Suspect]
     Dosage: 4 MG, TOTAL DAILY, ORAL
     Route: 048
     Dates: end: 20051219
  3. FUROSEMIDE [Suspect]
     Dates: end: 20051219
  4. SPIRONOLACTONE [Suspect]
     Dosage: 12.5 MG, TOTAL DAILY, ORAL
     Route: 048
     Dates: end: 20051219

REACTIONS (2)
  - HYPERKALAEMIA [None]
  - RENAL FAILURE ACUTE [None]
